FAERS Safety Report 23626942 (Version 1)
Quarter: 2024Q1

REPORT INFORMATION
  Report Type: Spontaneous
  Country: US (occurrence: None)
  Receive Date: 20240312
  Receipt Date: 20240312
  Transmission Date: 20240410
  Serious: No
  Sender: FDA-Public Use
  Company Number: None

PATIENT
  Sex: 0

DRUGS (1)
  1. OLMESARTAN [Suspect]
     Active Substance: OLMESARTAN

REACTIONS (7)
  - Headache [None]
  - Drug intolerance [None]
  - Swelling [None]
  - Hypersensitivity [None]
  - Arthralgia [None]
  - Nausea [None]
  - Vomiting [None]
